FAERS Safety Report 18393972 (Version 1)
Quarter: 2020Q4

REPORT INFORMATION
  Report Type: Spontaneous
  Country: BG (occurrence: BG)
  Receive Date: 20201016
  Receipt Date: 20201016
  Transmission Date: 20210114
  Serious: Yes (Death, Other)
  Sender: FDA-Public Use
  Company Number: BG-ASTRAZENECA-2020SF33582

PATIENT
  Age: 88 Year
  Sex: Male

DRUGS (1)
  1. TAGRISSO [Suspect]
     Active Substance: OSIMERTINIB
     Route: 048

REACTIONS (5)
  - Metastases to central nervous system [Unknown]
  - Death [Fatal]
  - Metastases to liver [Unknown]
  - Performance status decreased [Unknown]
  - Metastases to bone [Unknown]
